FAERS Safety Report 9748860 (Version 1)
Quarter: 2013Q4

REPORT INFORMATION
  Report Type: Spontaneous
  Country: US (occurrence: US)
  Receive Date: 20131212
  Receipt Date: 20131212
  Transmission Date: 20140711
  Serious: No
  Sender: FDA-Public Use
  Company Number: US-INCYTE CORPORATION-2013IN002060

PATIENT
  Sex: Male
  Weight: 87.53 kg

DRUGS (1)
  1. JAKAFI [Suspect]
     Indication: SPLEEN DISORDER
     Dosage: 15 MG, BID
     Route: 048
     Dates: start: 201302

REACTIONS (3)
  - Constipation [Recovered/Resolved with Sequelae]
  - Diarrhoea [Unknown]
  - Weight increased [Unknown]
